FAERS Safety Report 24243249 (Version 1)
Quarter: 2024Q3

REPORT INFORMATION
  Report Type: Spontaneous
  Country: US (occurrence: None)
  Receive Date: 20240823
  Receipt Date: 20240823
  Transmission Date: 20241016
  Serious: Yes (Other)
  Sender: Public
  Company Number: None

PATIENT
  Age: 78 Year
  Sex: Female
  Weight: 63.45 kg

DRUGS (7)
  1. RAMELTEON [Suspect]
     Active Substance: RAMELTEON
     Indication: Sleep disorder
     Dosage: 1 TABLET AT BEDTIME ORAL
     Route: 048
     Dates: start: 20240820, end: 20240821
  2. ALPRAZOLAM [Concomitant]
     Active Substance: ALPRAZOLAM
  3. ESTRADIOL [Concomitant]
     Active Substance: ESTRADIOL
  4. LEVOTHYROXINE [Concomitant]
     Active Substance: LEVOTHYROXINE\LEVOTHYROXINE SODIUM
  5. CALCIUM WITH D3 [Concomitant]
  6. MULTIVITAMIN FOR WOMEN 50+ [Concomitant]
  7. K2 MK7 [Concomitant]

REACTIONS (2)
  - Tremor [None]
  - Headache [None]

NARRATIVE: CASE EVENT DATE: 20240820
